FAERS Safety Report 4923558-2 (Version None)
Quarter: 2006Q1

REPORT INFORMATION
  Report Type: 
  Country: None (occurrence: None)
  Receive Date: 20060227
  Receipt Date: 20060224
  Transmission Date: 20060701
  Serious: Yes (Other)
  Sender: FDA-Public Use
  Company Number: US-GLAXOSMITHKLINE-A0595081A

PATIENT
  Age: 71 Year
  Sex: Male

DRUGS (8)
  1. NICORETTE [Suspect]
     Dosage: 2MG SEE DOSAGE TEXT
     Route: 002
     Dates: start: 20020705
  2. ATIVAN [Concomitant]
  3. TOPROL [Concomitant]
  4. ASPIRIN [Concomitant]
  5. COZAAR [Concomitant]
  6. PLAVIX [Concomitant]
  7. NEXIUM [Concomitant]
  8. CLONIDINE [Concomitant]

REACTIONS (2)
  - DEPENDENCE [None]
  - INTENTIONAL DRUG MISUSE [None]
